FAERS Safety Report 22623980 (Version 2)
Quarter: 2023Q2

REPORT INFORMATION
  Report Type: Spontaneous
  Country: DE (occurrence: None)
  Receive Date: 20230621
  Receipt Date: 20230628
  Transmission Date: 20230721
  Serious: Yes (Disabling, Other)
  Sender: FDA-Public Use
  Company Number: DE-ROCHE-3369141

PATIENT
  Age: 64 Year
  Sex: Female

DRUGS (1)
  1. VABYSMO [Suspect]
     Active Substance: FARICIMAB-SVOA
     Indication: Neovascular age-related macular degeneration
     Route: 050
     Dates: start: 20230411, end: 20230509

REACTIONS (2)
  - Retinal haemorrhage [Not Recovered/Not Resolved]
  - Lymphoma [Unknown]

NARRATIVE: CASE EVENT DATE: 20230603
